FAERS Safety Report 21737086 (Version 1)
Quarter: 2022Q4

REPORT INFORMATION
  Report Type: Report from Study
  Country: US (occurrence: US)
  Receive Date: 20221216
  Receipt Date: 20221216
  Transmission Date: 20230112
  Serious: No
  Sender: FDA-Public Use
  Company Number: US-ACADIA PHARMACEUTICALS INC.-ACA-2022-PIM-004085

PATIENT
  Sex: Male

DRUGS (18)
  1. NUPLAZID [Suspect]
     Active Substance: PIMAVANSERIN TARTRATE
     Indication: Parkinson^s disease psychosis
     Dosage: 34 MILLIGRAM, QD
     Route: 065
  2. OMEPRAZOLE [Concomitant]
     Active Substance: OMEPRAZOLE
  3. TOTILAC [Concomitant]
  4. GABAPENTIN [Concomitant]
     Active Substance: GABAPENTIN
  5. MEDEBIOTIN [Concomitant]
  6. TROSPIUM [Concomitant]
     Active Substance: TROSPIUM
  7. GLIMEPIRIDE [Concomitant]
     Active Substance: GLIMEPIRIDE
  8. ATORVASTATIN [Concomitant]
     Active Substance: ATORVASTATIN
  9. CARBIDOPA\LEVODOPA [Concomitant]
     Active Substance: CARBIDOPA\LEVODOPA
  10. VALIUM [Concomitant]
     Active Substance: DIAZEPAM
  11. AMITRIPTYLINE [Concomitant]
     Active Substance: AMITRIPTYLINE
  12. CITALOPRAM [Concomitant]
     Active Substance: CITALOPRAM HYDROBROMIDE
  13. XARELTO [Concomitant]
     Active Substance: RIVAROXABAN
  14. VICTOZA [Concomitant]
     Active Substance: LIRAGLUTIDE
  15. TARCEVA [Concomitant]
     Active Substance: ERLOTINIB HYDROCHLORIDE
  16. HALCION [Concomitant]
     Active Substance: TRIAZOLAM
  17. LEVETIRACETAM [Concomitant]
     Active Substance: LEVETIRACETAM
  18. PRAMIPEXOLE [Concomitant]
     Active Substance: PRAMIPEXOLE

REACTIONS (1)
  - Cognitive disorder [Unknown]
